FAERS Safety Report 20994703 (Version 1)
Quarter: 2022Q2

REPORT INFORMATION
  Report Type: Spontaneous
  Country: CH (occurrence: CH)
  Receive Date: 20220622
  Receipt Date: 20220622
  Transmission Date: 20220720
  Serious: Yes (Other)
  Sender: FDA-Public Use
  Company Number: CH-PFIZER INC-202200813707

PATIENT
  Sex: Female
  Weight: 53 kg

DRUGS (29)
  1. AVIBACTAM SODIUM\CEFTAZIDIME [Suspect]
     Active Substance: AVIBACTAM SODIUM\CEFTAZIDIME
     Indication: Atypical mycobacterial lower respiratory tract infection
     Dosage: UNK
     Route: 042
     Dates: start: 20220503, end: 20220505
  2. ESTRADIOL [Suspect]
     Active Substance: ESTRADIOL
     Indication: Osteoporosis prophylaxis
     Dosage: 25 UG
     Route: 062
     Dates: start: 2021, end: 20220505
  3. TYGACIL [Concomitant]
     Active Substance: TIGECYCLINE
     Dosage: 50 MG, 2X/DAY
     Dates: start: 20220428
  4. MORPHINE SULFATE [Concomitant]
     Active Substance: MORPHINE SULFATE
     Dosage: 1 DF, 1X/DAY
     Dates: start: 20220428
  5. DAFALGAN [Concomitant]
     Active Substance: ACETAMINOPHEN
     Dosage: 1 DF, 2X/DAY
     Dates: start: 20220428
  6. ONDANSETRON TEVA [ONDANSETRON] [Concomitant]
     Dosage: 4 MG
     Dates: start: 20220515
  7. ONDANSETRON TEVA [ONDANSETRON] [Concomitant]
     Dosage: 4 MG
     Dates: start: 20220514
  8. ONDANSETRON TEVA [ONDANSETRON] [Concomitant]
     Dosage: 4 MG
     Dates: start: 20220513
  9. ONDANSETRON TEVA [ONDANSETRON] [Concomitant]
     Dosage: 4 MG
     Dates: start: 20220505
  10. ONDANSETRON TEVA [ONDANSETRON] [Concomitant]
     Dosage: 4 MG
     Dates: start: 20220504
  11. ONDANSETRON TEVA [ONDANSETRON] [Concomitant]
     Dosage: 4 MG
     Dates: start: 20220503
  12. ONDANSETRON TEVA [ONDANSETRON] [Concomitant]
     Dosage: 4 MG
     Dates: start: 20220502
  13. ONDANSETRON TEVA [ONDANSETRON] [Concomitant]
     Dosage: 4 MG
     Dates: start: 20220501
  14. ONDANSETRON TEVA [ONDANSETRON] [Concomitant]
     Dosage: 4 MG, 2X/DAY
     Dates: start: 20220429
  15. MEROPENEM [Concomitant]
     Active Substance: MEROPENEM
     Dosage: 2 G, 3X/DAY
     Dates: start: 20220501
  16. AZITHROMYCIN [Concomitant]
     Active Substance: AZITHROMYCIN
     Dosage: 500 MG, 1X/DAY
     Dates: start: 20220505
  17. LAMPRENE [Concomitant]
     Active Substance: CLOFAZIMINE
     Dosage: 1 DF, 1X/DAY
  18. CALCIUM\CHOLECALCIFEROL [Concomitant]
     Active Substance: CALCIUM\CHOLECALCIFEROL
     Dosage: 1 DF, 1X/DAY 1000/800
  19. EUTHYROX [Concomitant]
     Active Substance: LEVOTHYROXINE SODIUM
     Dosage: 1 DF, 1X/DAY
  20. SODIUM CHONDROITIN SULFATE [Concomitant]
     Active Substance: SODIUM CHONDROITIN SULFATE
     Dosage: 1 DF, 1X/DAY
  21. TORSEMIDE [Concomitant]
     Active Substance: TORSEMIDE
     Dosage: 2.5 MG, 1X/DAY
  22. BUTYLSCOPOLAMINE BROMIDE [Concomitant]
     Active Substance: BUTYLSCOPOLAMINE BROMIDE
     Dosage: UNK
     Dates: start: 20220504
  23. SODIUM PICOSULFATE [Concomitant]
     Active Substance: SODIUM PICOSULFATE
     Dosage: 15 DROP
     Dates: start: 20220515
  24. SODIUM PICOSULFATE [Concomitant]
     Active Substance: SODIUM PICOSULFATE
     Dosage: 15 DROP
     Dates: start: 20220510
  25. SODIUM PICOSULFATE [Concomitant]
     Active Substance: SODIUM PICOSULFATE
     Dosage: 15 DROP
     Dates: start: 20220509
  26. SODIUM PICOSULFATE [Concomitant]
     Active Substance: SODIUM PICOSULFATE
     Dosage: 15 DROP
     Dates: start: 20220506
  27. SODIUM PICOSULFATE [Concomitant]
     Active Substance: SODIUM PICOSULFATE
     Dosage: 15 DROP
     Dates: start: 20220505
  28. EMEND [Concomitant]
     Active Substance: APREPITANT
     Dosage: 1 UNK
     Dates: start: 20220515
  29. EMEND [Concomitant]
     Active Substance: APREPITANT
     Dosage: 1 DF
     Dates: start: 20220514

REACTIONS (3)
  - Pancreatitis [Recovered/Resolved]
  - Lipase increased [Recovered/Resolved]
  - Abdominal pain upper [Recovered/Resolved]

NARRATIVE: CASE EVENT DATE: 20220505
